FAERS Safety Report 5822657-0 (Version None)
Quarter: 2008Q3

REPORT INFORMATION
  Report Type: 
  Country: None (occurrence: None)
  Receive Date: 20080725
  Receipt Date: 20080515
  Transmission Date: 20090109
  Serious: No
  Sender: FDA-Public Use
  Company Number: DE-BAYER-200822473GPV

PATIENT
  Age: 50 Year
  Sex: Female

DRUGS (1)
  1. MIRENA [Suspect]
     Indication: DRUG USE FOR UNKNOWN INDICATION
     Route: 015
     Dates: start: 20020101, end: 20070101

REACTIONS (9)
  - BREAST CYST [None]
  - CYSTITIS [None]
  - DEPRESSION [None]
  - DISTURBANCE IN ATTENTION [None]
  - DIZZINESS [None]
  - FUNGAL INFECTION [None]
  - PANIC ATTACK [None]
  - URTICARIA [None]
  - VISUAL IMPAIRMENT [None]
